FAERS Safety Report 9430324 (Version 1)
Quarter: 2013Q3

REPORT INFORMATION
  Report Type: Spontaneous
  Country: US (occurrence: US)
  Receive Date: 20130730
  Receipt Date: 20130730
  Transmission Date: 20140515
  Serious: Yes (Other)
  Sender: FDA-Public Use
  Company Number: US-GLAXOSMITHKLINE-A1034902A

PATIENT
  Age: 66 Year
  Sex: Female

DRUGS (7)
  1. ADVAIR [Suspect]
     Indication: DYSPNOEA
     Dosage: 1PUFF TWICE PER DAY
     Route: 055
     Dates: start: 20130705, end: 20130710
  2. MULTI VITAMIN [Concomitant]
  3. ASPIRIN LOW DOSE [Concomitant]
  4. BIOTIN [Concomitant]
  5. CALCIUM [Concomitant]
  6. ALLEGRA [Concomitant]
  7. ZYRTEC [Concomitant]

REACTIONS (14)
  - Myocardial infarction [Recovering/Resolving]
  - Pulmonary congestion [Recovering/Resolving]
  - Dyspnoea [Recovering/Resolving]
  - Vomiting projectile [Recovering/Resolving]
  - Gastrooesophageal reflux disease [Recovering/Resolving]
  - Increased viscosity of bronchial secretion [Recovering/Resolving]
  - Oral candidiasis [Recovering/Resolving]
  - Insomnia [Recovering/Resolving]
  - Dysphagia [Recovering/Resolving]
  - Choking sensation [Recovering/Resolving]
  - Throat tightness [Recovering/Resolving]
  - Chest discomfort [Recovering/Resolving]
  - Sensation of foreign body [Recovering/Resolving]
  - Ill-defined disorder [Recovering/Resolving]
